FAERS Safety Report 7757472-4 (Version None)
Quarter: 2011Q3

REPORT INFORMATION
  Report Type: 
  Country: None (occurrence: None)
  Receive Date: 20110916
  Receipt Date: 20110908
  Transmission Date: 20111222
  Serious: Yes (Other)
  Sender: FDA-Public Use
  Company Number: US-US-EMD SERONO, INC.-7082055

PATIENT
  Sex: Female
  Weight: 70 kg

DRUGS (9)
  1. NEXIUM [Concomitant]
  2. BACLOFEN [Concomitant]
  3. ATIVAN [Concomitant]
  4. DILTIAZEM [Concomitant]
  5. REBIF [Suspect]
     Indication: MULTIPLE SCLEROSIS
     Route: 058
     Dates: start: 20070926
  6. GABAPENTIN [Concomitant]
  7. FENTANYL-100 [Concomitant]
  8. VICODIN [Concomitant]
  9. AMBIEN [Concomitant]

REACTIONS (3)
  - BREAST CANCER [None]
  - INJECTION SITE PAIN [None]
  - DEPRESSION [None]
